FAERS Safety Report 6396725-1 (Version None)
Quarter: 2009Q4

REPORT INFORMATION
  Report Type: 
  Country: None (occurrence: None)
  Receive Date: 20091008
  Receipt Date: 20091008
  Transmission Date: 20100525
  Serious: Yes (Life-Threatening)
  Sender: FDA-Public Use
  Company Number: None

PATIENT
  Age: 58 Year
  Sex: Male
  Weight: 94.8018 kg

DRUGS (2)
  1. ADULT ROBITUSSIN COUGH ADULT WYETH [Suspect]
     Indication: ANTITUSSIVE THERAPY
     Dosage: TWO TEASPOONS 6 HOURS PO
     Route: 048
     Dates: start: 20091001, end: 20091001
  2. ADULT ROBITUSSIN COUGH [Suspect]
     Dates: start: 20091006, end: 20091006

REACTIONS (5)
  - CONDITION AGGRAVATED [None]
  - COUGH [None]
  - FALL [None]
  - HEAD INJURY [None]
  - LOSS OF CONSCIOUSNESS [None]
